FAERS Safety Report 6077093-1 (Version None)
Quarter: 2009Q1

REPORT INFORMATION
  Report Type: 
  Country: None (occurrence: None)
  Receive Date: 20090213
  Receipt Date: 20090205
  Transmission Date: 20090719
  Serious: Yes (Other)
  Sender: FDA-Public Use
  Company Number: PHHY2009GB02581

PATIENT
  Sex: Female

DRUGS (8)
  1. CLOZARIL [Suspect]
     Dosage: 450 MG/DAY
     Dates: start: 19970723
  2. CLOZAPINE [Suspect]
     Dosage: UNK
     Dates: start: 19970723
  3. AMISULPRIDE [Suspect]
     Dosage: 300 MG, UNK
     Route: 048
  4. LITHIUM [Suspect]
     Dosage: 1 G, UNK
     Route: 048
  5. SERTRALINE [Suspect]
     Dosage: 150 MG, UNK
     Route: 048
  6. ATORVASTATIN ^ADENYLCHEMIE^ [Concomitant]
     Dosage: 20 MG, UNK
     Route: 048
  7. SALBUTAMOL ^ALDO UNION^ [Concomitant]
     Dosage: 100 UG, UNK
  8. CLENIL [Concomitant]
     Dosage: 100 UG, UNK

REACTIONS (1)
  - ELECTROCARDIOGRAM QT PROLONGED [None]
